FAERS Safety Report 9601887 (Version 1)
Quarter: 2013Q4

REPORT INFORMATION
  Report Type: Spontaneous
  Country: US (occurrence: US)
  Receive Date: 20131007
  Receipt Date: 20131007
  Transmission Date: 20140711
  Serious: No
  Sender: FDA-Public Use
  Company Number: US-BAYER-2013-112365

PATIENT
  Age: 50 Year
  Sex: Male

DRUGS (7)
  1. AVELOX [Suspect]
     Indication: MYCOBACTERIAL INFECTION
     Dosage: 400 MG, QD
     Route: 048
  2. ZITHROMAX [Concomitant]
  3. MYAMBUTOL [Concomitant]
  4. FLONASE [Concomitant]
  5. PROTONIX [Concomitant]
  6. MYCOBUTIN [Concomitant]
  7. SPIRIVA [Concomitant]

REACTIONS (5)
  - Renal pain [Not Recovered/Not Resolved]
  - Headache [Not Recovered/Not Resolved]
  - Nausea [Not Recovered/Not Resolved]
  - Dizziness [Not Recovered/Not Resolved]
  - Myalgia [Not Recovered/Not Resolved]
